FAERS Safety Report 21348319 (Version 1)
Quarter: 2022Q3

REPORT INFORMATION
  Report Type: Spontaneous
  Country: US (occurrence: None)
  Receive Date: 20220916
  Receipt Date: 20220916
  Transmission Date: 20221026
  Serious: Yes (Hospitalization)
  Sender: FDA-Public Use
  Company Number: None

PATIENT
  Age: 56 Year
  Sex: Female

DRUGS (4)
  1. MYCOPHENOLIC ACID [Suspect]
     Active Substance: MYCOPHENOLIC ACID
     Indication: Renal transplant
     Dosage: FREQUENCY : DAILY;?
     Route: 048
     Dates: start: 20200318
  2. MULTVITAMIN TAB ADULTS [Concomitant]
  3. TYLENOL TAB [Concomitant]
  4. VITAMIN D CAP [Concomitant]

REACTIONS (1)
  - Cyclic vomiting syndrome [None]

NARRATIVE: CASE EVENT DATE: 20220905
